FAERS Safety Report 6339596-1 (Version None)
Quarter: 2009Q3

REPORT INFORMATION
  Report Type: 
  Country: None (occurrence: None)
  Receive Date: 20090903
  Receipt Date: 20090826
  Transmission Date: 20100115
  Serious: Yes (Death)
  Sender: FDA-Public Use
  Company Number: CN-BRACCO-000095

PATIENT
  Age: 56 Year
  Sex: Female

DRUGS (3)
  1. IOPAMIRO [Suspect]
     Indication: ANEURYSM
     Route: 065
     Dates: start: 20090720, end: 20090720
  2. IOPAMIRO [Suspect]
     Indication: COMPUTERISED TOMOGRAM
     Route: 065
     Dates: start: 20090720, end: 20090720
  3. EPINEPHRINE [Concomitant]
     Dates: start: 20090720, end: 20090720

REACTIONS (1)
  - SUDDEN CARDIAC DEATH [None]
